FAERS Safety Report 16661846 (Version 1)
Quarter: 2019Q3

REPORT INFORMATION
  Report Type: Report from Study
  Country: None (occurrence: BR)
  Receive Date: 20190802
  Receipt Date: 20190802
  Transmission Date: 20191004
  Serious: Yes (Death, Hospitalization, Other)
  Sender: FDA-Public Use
  Company Number: BR-ABBVIE-19K-020-2875358-00

PATIENT
  Age: 69 Year
  Sex: Male
  Weight: 54 kg

DRUGS (1)
  1. HUMIRA [Suspect]
     Active Substance: ADALIMUMAB
     Indication: CROHN^S DISEASE
     Route: 058
     Dates: start: 20180723

REACTIONS (9)
  - Rectal obstruction [Not Recovered/Not Resolved]
  - Myocardial infarction [Unknown]
  - Large intestinal obstruction [Unknown]
  - Rectal neoplasm [Not Recovered/Not Resolved]
  - Crohn^s disease [Fatal]
  - Hypophagia [Unknown]
  - Fluid intake reduced [Unknown]
  - Gastrointestinal neoplasm [Not Recovered/Not Resolved]
  - Procedural complication [Unknown]

NARRATIVE: CASE EVENT DATE: 20190715
